FAERS Safety Report 25455840 (Version 3)
Quarter: 2025Q3

REPORT INFORMATION
  Report Type: Report from Study
  Country: US (occurrence: US)
  Receive Date: 20250619
  Receipt Date: 20250730
  Transmission Date: 20251021
  Serious: No
  Sender: SUNOVION
  Company Number: US-SMPA-2025SPA006503AA

PATIENT

DRUGS (11)
  1. ORGOVYX [Suspect]
     Active Substance: RELUGOLIX
     Indication: Prostate cancer
     Dosage: 120 MG, QD
     Route: 048
  2. NUBEQA [Suspect]
     Active Substance: DAROLUTAMIDE
     Route: 048
  3. OMEPRAZOLE [Concomitant]
     Active Substance: OMEPRAZOLE
     Route: 048
  4. ROSUVASTATIN [Concomitant]
     Active Substance: ROSUVASTATIN
     Route: 048
  5. VALSARTAN [Concomitant]
     Active Substance: VALSARTAN
     Route: 048
  6. VITAMIN B12 [Concomitant]
     Active Substance: CYANOCOBALAMIN
     Route: 060
  7. AMLODIPINE [Concomitant]
     Active Substance: AMLODIPINE BESYLATE
     Route: 048
  8. ASPIRIN [Concomitant]
     Active Substance: ASPIRIN
     Route: 065
  9. FISH OIL [Concomitant]
     Active Substance: FISH OIL
     Route: 065
  10. HYDROCHLOROTHIAZIDE [Concomitant]
     Active Substance: HYDROCHLOROTHIAZIDE
     Route: 048
  11. SLEEP AID (DIPHENHYDRAMINE HYDROCHLORIDE) [Concomitant]
     Active Substance: DIPHENHYDRAMINE HYDROCHLORIDE
     Route: 065

REACTIONS (4)
  - Hot flush [Unknown]
  - Insomnia [Unknown]
  - Arthritis [Unknown]
  - Incorrect dose administered [Unknown]
